FAERS Safety Report 11070865 (Version 1)
Quarter: 2015Q2

REPORT INFORMATION
  Report Type: Spontaneous
  Country: CZ (occurrence: CZ)
  Receive Date: 20150428
  Receipt Date: 20150428
  Transmission Date: 20150821
  Serious: Yes (Other)
  Sender: FDA-Public Use
  Company Number: CZ-AMGEN-CZESP2015039445

PATIENT
  Age: 64 Year

DRUGS (5)
  1. PLERIXAFOR [Concomitant]
     Active Substance: PLERIXAFOR
     Indication: HAEMATOPOIETIC STEM CELL MOBILISATION
     Dosage: UNK
  2. MELFALAN                           /00006401/ [Concomitant]
     Indication: STEM CELL TRANSPLANT
     Dosage: 140 MG/QM.
  3. PREDNISON [Concomitant]
     Active Substance: PREDNISONE
     Dosage: UNK
  4. TACROLIMUS. [Concomitant]
     Active Substance: TACROLIMUS
     Dosage: UNK
  5. NEUPOGEN [Suspect]
     Active Substance: FILGRASTIM
     Indication: HAEMATOPOIETIC STEM CELL MOBILISATION
     Dosage: 10 MG/KG/DAY
     Route: 065

REACTIONS (5)
  - Pericardial effusion [Recovered/Resolved]
  - Cardiac failure chronic [Recovered/Resolved]
  - Pleural effusion [Recovered/Resolved]
  - Cardiac amyloidosis [Recovered/Resolved]
  - Cardiotoxicity [Recovered/Resolved]
